FAERS Safety Report 8902456 (Version 3)
Quarter: 2013Q2

REPORT INFORMATION
  Report Type: Spontaneous
  Country: JP (occurrence: JP)
  Receive Date: 20121112
  Receipt Date: 20130403
  Transmission Date: 20140414
  Serious: Yes (Hospitalization, Other)
  Sender: FDA-Public Use
  Company Number: JP-ROCHE-1154092

PATIENT
  Age: 68 Year
  Sex: Female
  Weight: 50 kg

DRUGS (9)
  1. HERCEPTIN [Suspect]
     Indication: BREAST CANCER RECURRENT
     Route: 041
     Dates: start: 20110831, end: 20110831
  2. HERCEPTIN [Suspect]
     Indication: BREAST CANCER RECURRENT
     Route: 041
     Dates: start: 20110930, end: 20120421
  3. HERCEPTIN [Suspect]
     Indication: BREAST CANCER RECURRENT
     Route: 041
     Dates: start: 20120503, end: 20121017
  4. HERCEPTIN [Suspect]
     Indication: BREAST CANCER RECURRENT
     Dosage: DOSAGE IS UNCERTAIN.
     Route: 041
     Dates: start: 20121226
  5. XELODA [Suspect]
     Indication: BREAST CANCER RECURRENT
     Route: 048
     Dates: start: 20111207, end: 20111221
  6. XELODA [Suspect]
     Indication: BREAST CANCER RECURRENT
     Route: 048
     Dates: start: 20120229, end: 20120403
  7. TAXOL [Concomitant]
     Indication: BREAST CANCER RECURRENT
     Route: 041
     Dates: start: 20120425, end: 20120801
  8. GLACTIV [Concomitant]
     Indication: DIABETES MELLITUS
     Route: 048
  9. METFORMIN HYDROCHLORIDE [Concomitant]
     Indication: DIABETES MELLITUS
     Dosage: DOSAGE IS UNCERTAIN. DRUG REPORTED AS METGLUCO
     Route: 048

REACTIONS (4)
  - Asthma [Recovered/Resolved]
  - Hepatitis C [Unknown]
  - Gastric ulcer [Unknown]
  - Hypertension [Unknown]
